FAERS Safety Report 8936017 (Version 2)
Quarter: 2013Q1

REPORT INFORMATION
  Report Type: Spontaneous
  Country: IT (occurrence: IT)
  Receive Date: 20121130
  Receipt Date: 20130102
  Transmission Date: 20140127
  Serious: Yes (Hospitalization)
  Sender: FDA-Public Use
  Company Number: IT-B.I. PHARMACEUTICALS,INC./RIDGEFIELD-2012-IT-00370IT

PATIENT
  Age: 86 Year
  Sex: Female

DRUGS (3)
  1. AGGRENOX [Suspect]
     Indication: TRANSIENT ISCHAEMIC ATTACK
     Dosage: STRENGTH: 200 MG+ 25 MG; DAILY DOSE: ONE POSOLOGIC UNIT
     Route: 048
     Dates: start: 20090302, end: 20120302
  2. ARIMIDEX [Concomitant]
     Route: 048
  3. BLOPRESID [Concomitant]
     Indication: HYPERTENSION
     Route: 048

REACTIONS (1)
  - Subdural haematoma [Not Recovered/Not Resolved]
